FAERS Safety Report 18521155 (Version 1)
Quarter: 2020Q4

REPORT INFORMATION
  Report Type: Spontaneous
  Country: US (occurrence: US)
  Receive Date: 20201118
  Receipt Date: 20201118
  Transmission Date: 20210114
  Serious: Yes (Life-Threatening, Hospitalization)
  Sender: FDA-Public Use
  Company Number: None

PATIENT
  Age: 62 Year
  Sex: Female

DRUGS (1)
  1. BORTEZOMIB. [Suspect]
     Active Substance: BORTEZOMIB

REACTIONS (4)
  - Dyspnoea [None]
  - Phrenic nerve paralysis [None]
  - Arthralgia [None]
  - Bone lesion [None]

NARRATIVE: CASE EVENT DATE: 20201016
